FAERS Safety Report 24825753 (Version 1)
Quarter: 2025Q1

REPORT INFORMATION
  Report Type: Spontaneous
  Country: US (occurrence: None)
  Receive Date: 20250109
  Receipt Date: 20250109
  Transmission Date: 20250408
  Serious: Yes (Other)
  Sender: US WORLDMEDS
  Company Number: US-USWM, LLC-UWM202410-000094

PATIENT
  Sex: Female

DRUGS (1)
  1. IWILFIN [Suspect]
     Active Substance: EFLORNITHINE HYDROCHLORIDE
     Indication: Product used for unknown indication

REACTIONS (1)
  - Blood alkaline phosphatase increased [Unknown]
